FAERS Safety Report 14721701 (Version 2)
Quarter: 2018Q2

REPORT INFORMATION
  Report Type: Spontaneous
  Country: ES (occurrence: ES)
  Receive Date: 20180405
  Receipt Date: 20180426
  Transmission Date: 20180711
  Serious: Yes (Other)
  Sender: FDA-Public Use
  Company Number: ES-TEVA-2017-ES-826304

PATIENT
  Age: 14 Year
  Sex: Female

DRUGS (5)
  1. SODIUM OXYBATE. [Suspect]
     Active Substance: SODIUM OXYBATE
     Indication: NARCOLEPSY
     Dosage: 4 GRAM DAILY;
     Route: 065
  2. BIPERIDEN [Concomitant]
     Active Substance: BIPERIDEN
  3. SODIUM OXYBATE. [Suspect]
     Active Substance: SODIUM OXYBATE
     Dosage: LOW DOSE
     Route: 065
     Dates: start: 201406
  4. MODAFINIL. [Suspect]
     Active Substance: MODAFINIL
     Indication: NARCOLEPSY
     Dosage: 100 MILLIGRAM DAILY;
     Route: 065
  5. RISPERIDONE. [Suspect]
     Active Substance: RISPERIDONE
     Indication: HALLUCINATION
     Dosage: .5 MILLIGRAM DAILY;
     Route: 065
     Dates: start: 201209

REACTIONS (9)
  - Galactorrhoea [Unknown]
  - Irritability [Recovered/Resolved]
  - Abnormal behaviour [Recovered/Resolved]
  - Hallucination, auditory [Recovered/Resolved]
  - Delusion [Unknown]
  - Dysphoria [Recovered/Resolved]
  - Weight increased [Unknown]
  - Suicidal ideation [Recovered/Resolved]
  - Hyperprolactinaemia [Unknown]

NARRATIVE: CASE EVENT DATE: 201305
